FAERS Safety Report 8817349 (Version 2)
Quarter: 2012Q4

REPORT INFORMATION
  Report Type: 
  Country: US (occurrence: US)
  Receive Date: 20121004
  Receipt Date: 20121011
  Transmission Date: 20130627
  Serious: Yes (Hospitalization)
  Sender: FDA-Public Use
  Company Number: US-009507513-1001USA00594

PATIENT
  Age: 48 Year
  Sex: Female
  Weight: 54.2 kg

DRUGS (5)
  1. RALTEGRAVIR POTASSIUM [Suspect]
     Dosage: 400 mg, bid
     Route: 048
     Dates: start: 20090915
  2. EMTRICITABINE [Suspect]
     Indication: HIV INFECTION
     Dosage: 500 mg, qd
     Route: 048
     Dates: start: 20090915
  3. TENOFOVIR DISOPROXIL FUMARATE [Suspect]
     Dosage: 300 mg, qd
     Route: 048
     Dates: start: 20090915
  4. TRAZODONE HYDROCHLORIDE [Concomitant]
     Indication: INSOMNIA
     Dosage: UNK UNK, hs
     Route: 048
     Dates: start: 20091224
  5. COCAINE [Concomitant]
     Route: 055

REACTIONS (5)
  - Subclavian vein thrombosis [Recovering/Resolving]
  - Axillary vein thrombosis [Recovering/Resolving]
  - Vena cava thrombosis [Recovering/Resolving]
  - Back pain [Not Recovered/Not Resolved]
  - Hip fracture [Recovered/Resolved]
